FAERS Safety Report 4715277-2 (Version None)
Quarter: 2005Q3

REPORT INFORMATION
  Report Type: 
  Country: None (occurrence: None)
  Receive Date: 20050715
  Receipt Date: 20050701
  Transmission Date: 20060218
  Serious: Yes (Other)
  Sender: FDA-Public Use
  Company Number: JP-JNJFOC-20050404756

PATIENT
  Sex: Male

DRUGS (14)
  1. ITRIZOLE [Suspect]
     Indication: PNEUMONIA ASPERGILLUS
     Route: 048
  2. CYCLOSPORINE [Interacting]
     Route: 048
  3. CYCLOSPORINE [Interacting]
     Route: 048
  4. PREDNISOLONE [Suspect]
     Route: 065
  5. VANCOMYCIN HYDROCHLORIDE [Suspect]
     Route: 065
  6. VANCOMYCIN HYDROCHLORIDE [Suspect]
     Route: 065
  7. AMPHOTERICIN B [Suspect]
     Indication: PNEUMONIA ASPERGILLUS
     Dosage: 20-30MG/DAY
     Route: 065
  8. MYCOPHENOLATE MOFETIL [Concomitant]
  9. LANSOPRAZOLE [Concomitant]
  10. ACYCLOVIR [Concomitant]
  11. TRIMETHOPRIM [Concomitant]
  12. MICAFUNGIN SODIUM [Concomitant]
     Indication: PNEUMONIA ASPERGILLUS
     Route: 065
  13. FOSFOMYCIN [Concomitant]
     Route: 042
  14. FOSFOMYCIN [Concomitant]
     Route: 042

REACTIONS (4)
  - DELIRIUM [None]
  - DRUG INTERACTION [None]
  - RENAL DISORDER [None]
  - RESTLESSNESS [None]
